FAERS Safety Report 12643737 (Version 3)
Quarter: 2016Q3

REPORT INFORMATION
  Report Type: Spontaneous
  Country: US (occurrence: US)
  Receive Date: 20160811
  Receipt Date: 20160914
  Transmission Date: 20161109
  Serious: Yes (Death, Hospitalization)
  Sender: FDA-Public Use
  Company Number: US-CELGENEUS-USA-2016081896

PATIENT
  Sex: Female

DRUGS (4)
  1. REVLIMID [Suspect]
     Active Substance: LENALIDOMIDE
     Indication: PLASMA CELL MYELOMA
     Route: 048
     Dates: start: 20140604
  2. REVLIMID [Suspect]
     Active Substance: LENALIDOMIDE
     Route: 048
     Dates: start: 20160624
  3. REVLIMID [Suspect]
     Active Substance: LENALIDOMIDE
     Dosage: 15-25MG
     Route: 048
     Dates: start: 201410
  4. REVLIMID [Suspect]
     Active Substance: LENALIDOMIDE
     Route: 048
     Dates: start: 201412, end: 2015

REACTIONS (2)
  - Death [Fatal]
  - Drug intolerance [Unknown]

NARRATIVE: CASE EVENT DATE: 2016
